FAERS Safety Report 12388787 (Version 5)
Quarter: 2016Q3

REPORT INFORMATION
  Report Type: Spontaneous
  Country: CN (occurrence: CN)
  Receive Date: 20160520
  Receipt Date: 20160714
  Transmission Date: 20161109
  Serious: Yes (Death, Other)
  Sender: FDA-Public Use
  Company Number: CN-BAYER-2016-092635

PATIENT
  Age: 50 Year
  Sex: Female

DRUGS (1)
  1. AVELOX [Suspect]
     Active Substance: MOXIFLOXACIN HYDROCHLORIDE
     Indication: ABSCESS
     Dosage: UNK
     Route: 042
     Dates: start: 20160509

REACTIONS (9)
  - Cardiac arrest [Recovered/Resolved]
  - Palpitations [Recovered/Resolved]
  - Muscle twitching [None]
  - Condition aggravated [Fatal]
  - Ventricular fibrillation [None]
  - Anaphylactic shock [Fatal]
  - Unresponsive to stimuli [None]
  - Chest discomfort [Recovered/Resolved]
  - Off label use [None]

NARRATIVE: CASE EVENT DATE: 20160509
